FAERS Safety Report 20219592 (Version 2)
Quarter: 2021Q4

REPORT INFORMATION
  Report Type: Spontaneous
  Country: IN (occurrence: None)
  Receive Date: 20211222
  Receipt Date: 20211230
  Transmission Date: 20220303
  Serious: Yes (Death, Hospitalization, Other)
  Sender: FDA-Public Use
  Company Number: IN-Eisai Medical Research-EC-2021-105404

PATIENT
  Age: 65 Year
  Sex: Female

DRUGS (2)
  1. RABEPRAZOLE [Suspect]
     Active Substance: RABEPRAZOLE
     Indication: Gastrooesophageal reflux disease
     Dosage: DOSE AND FREQUENCY UNKNOWN
     Route: 048
  2. PANTOPRAZOLE [Suspect]
     Active Substance: PANTOPRAZOLE
     Indication: Gastrooesophageal reflux disease
     Dosage: DOSE AND FREQUENCY UNKNOWN
     Route: 065

REACTIONS (6)
  - Leukocytosis [Unknown]
  - Hypoglycaemia [Unknown]
  - Systemic candida [Fatal]
  - Gastric perforation [Recovered/Resolved]
  - Neutrophilia [Unknown]
  - Anaemia [Unknown]
